FAERS Safety Report 9242535 (Version 3)
Quarter: 2015Q4

REPORT INFORMATION
  Report Type: Spontaneous
  Country: FI (occurrence: FI)
  Receive Date: 20130419
  Receipt Date: 20151124
  Transmission Date: 20160305
  Serious: Yes (Other)
  Sender: FDA-Public Use
  Company Number: FI-SANOFI-AVENTIS-2013SA038733

PATIENT
  Age: 59 Year
  Sex: Female

DRUGS (9)
  1. CORDARONE [Concomitant]
     Active Substance: AMIODARONE HYDROCHLORIDE
     Route: 065
     Dates: start: 20151110
  2. ELIQUIS [Concomitant]
     Active Substance: APIXABAN
     Indication: ANTICOAGULANT THERAPY
     Route: 065
     Dates: start: 2014
  3. TAMBOCOR [Concomitant]
     Active Substance: FLECAINIDE ACETATE
  4. SOTACOR [Concomitant]
     Active Substance: SOTALOL HYDROCHLORIDE
     Indication: ARRHYTHMIA
     Route: 048
     Dates: end: 20130408
  5. MAREVAN [Concomitant]
     Active Substance: WARFARIN SODIUM
     Indication: PRODUCT USED FOR UNKNOWN INDICATION
     Route: 048
     Dates: start: 20130409
  6. MULTAQ [Suspect]
     Active Substance: DRONEDARONE
     Indication: ATRIAL FIBRILLATION
     Route: 048
     Dates: start: 20130410, end: 20151109
  7. CRESTOR [Concomitant]
     Active Substance: ROSUVASTATIN CALCIUM
     Indication: HYPERCHOLESTEROLAEMIA
     Route: 048
     Dates: start: 20130409
  8. EMCONCOR [Concomitant]
     Active Substance: BISOPROLOL FUMARATE
     Dates: start: 2012
  9. KALEORID [Concomitant]
     Active Substance: POTASSIUM CHLORIDE
     Dosage: 1-3 G PER DAY
     Route: 065
     Dates: start: 20151020

REACTIONS (2)
  - Atrial fibrillation [Not Recovered/Not Resolved]
  - Drug ineffective [Unknown]

NARRATIVE: CASE EVENT DATE: 20130411
